FAERS Safety Report 8599131-4 (Version None)
Quarter: 2012Q3

REPORT INFORMATION
  Report Type: 
  Country: None (occurrence: None)
  Receive Date: 20120816
  Receipt Date: 20120810
  Transmission Date: 20120928
  Serious: Yes (Disabling)
  Sender: FDA-Public Use
  Company Number: JP-B.I. PHARMACEUTICALS,INC./RIDGEFIELD-2012-BP-17991NB

PATIENT
  Sex: Male
  Weight: 93.8 kg

DRUGS (9)
  1. BEZATOL SR [Concomitant]
     Dosage: 200 MG
     Route: 065
     Dates: start: 20080307
  2. PRADAXA [Suspect]
     Dosage: 220 MG
     Route: 065
     Dates: start: 20120418, end: 20120423
  3. EPLERENONE [Concomitant]
     Dosage: 50 MG
     Route: 065
     Dates: start: 20071116
  4. VOGLIBOSE [Concomitant]
     Dosage: 0.6 MG
     Route: 065
     Dates: start: 20101106
  5. CRESTOR [Concomitant]
     Dosage: 5 MG
     Route: 065
     Dates: start: 20081226
  6. DIART [Concomitant]
     Dosage: 30 MG
     Route: 065
     Dates: start: 20071016
  7. LANSOPRAZOLE [Concomitant]
     Dosage: 15 MG
     Route: 065
     Dates: start: 20070730
  8. LANTUS [Concomitant]
     Dosage: 8 U
     Route: 065
     Dates: start: 20101106
  9. ALLOPURINOL [Concomitant]
     Dosage: 200 MG
     Route: 065
     Dates: start: 20090526

REACTIONS (5)
  - OESOPHAGITIS HAEMORRHAGIC [None]
  - WEIGHT DECREASED [None]
  - MALAISE [None]
  - DEHYDRATION [None]
  - OESOPHAGEAL ULCER [None]
